FAERS Safety Report 11367528 (Version 1)
Quarter: 2015Q3

REPORT INFORMATION
  Report Type: Spontaneous
  Country: US (occurrence: US)
  Receive Date: 20150811
  Receipt Date: 20150811
  Transmission Date: 20151125
  Serious: No
  Sender: FDA-Public Use
  Company Number: US-ELI_LILLY_AND_COMPANY-US201204009913

PATIENT
  Sex: Male

DRUGS (6)
  1. AXIRON [Suspect]
     Active Substance: TESTOSTERONE
  2. COZAAR [Concomitant]
     Active Substance: LOSARTAN POTASSIUM
  3. HTZ [Concomitant]
  4. ALBUTEROL. [Concomitant]
     Active Substance: ALBUTEROL
  5. PREVACID [Concomitant]
     Active Substance: LANSOPRAZOLE
  6. ADVAIR HFA [Concomitant]
     Active Substance: FLUTICASONE PROPIONATE\SALMETEROL XINAFOATE

REACTIONS (2)
  - Dyspnoea [Unknown]
  - Chest pain [Unknown]
